FAERS Safety Report 7529505-1 (Version None)
Quarter: 2011Q2

REPORT INFORMATION
  Report Type: 
  Country: None (occurrence: None)
  Receive Date: 20110607
  Receipt Date: 20050707
  Transmission Date: 20111010
  Serious: Yes (Death, Other)
  Sender: FDA-Public Use
  Company Number: PHHO2005CA09465

PATIENT
  Sex: Male

DRUGS (5)
  1. CLOZARIL [Suspect]
     Dates: start: 19930728, end: 20050601
  2. VITAMIN B-12 [Concomitant]
  3. IRON SUPPLEMENTS [Concomitant]
  4. LAMOTRIGINE [Concomitant]
     Dosage: 150 MG, HS
  5. PRILOSEC [Concomitant]

REACTIONS (2)
  - DEATH [None]
  - CARDIOVASCULAR DISORDER [None]
